FAERS Safety Report 8885046 (Version 2)
Quarter: 2012Q4

REPORT INFORMATION
  Report Type: 
  Country: US (occurrence: US)
  Receive Date: 20121102
  Receipt Date: 20121122
  Transmission Date: 20130627
  Serious: No
  Sender: FDA-Public Use
  Company Number: US-PFIZER INC-2012272873

PATIENT
  Age: 9 Year
  Sex: Female
  Weight: 26.3 kg

DRUGS (1)
  1. CHILDRENS ADVIL [Suspect]
     Indication: HEADACHE
     Dosage: UNK, as needed
     Route: 048
     Dates: start: 20121027

REACTIONS (1)
  - Throat irritation [Unknown]
